FAERS Safety Report 18471222 (Version 1)
Quarter: 2020Q4

REPORT INFORMATION
  Report Type: Spontaneous
  Country: US (occurrence: US)
  Receive Date: 20201106
  Receipt Date: 20201106
  Transmission Date: 20210114
  Serious: No
  Sender: FDA-Public Use
  Company Number: US-GLAXOSMITHKLINE-US2020AMR214550

PATIENT
  Sex: Female

DRUGS (1)
  1. ZEJULA [Suspect]
     Active Substance: NIRAPARIB
     Indication: MALIGNANT PERITONEAL NEOPLASM
     Dosage: 300 MG, QD
     Route: 065
     Dates: start: 20201015

REACTIONS (8)
  - Gingival pain [Unknown]
  - Gingival discolouration [Unknown]
  - Tongue discolouration [Unknown]
  - Ageusia [Unknown]
  - Tongue coated [Unknown]
  - Swollen tongue [Not Recovered/Not Resolved]
  - Fatigue [Unknown]
  - Insomnia [Unknown]
